FAERS Safety Report 9619772 (Version 2)
Quarter: 2014Q1

REPORT INFORMATION
  Report Type: Report from Study
  Country: NL (occurrence: NL)
  Receive Date: 20131014
  Receipt Date: 20140128
  Transmission Date: 20141002
  Serious: Yes (Hospitalization)
  Sender: FDA-Public Use
  Company Number: NL-GLAXOSMITHKLINE-B0927081B

PATIENT
  Age: 64 Year
  Sex: Male

DRUGS (9)
  1. PAZOPANIB [Suspect]
     Indication: RENAL CELL CARCINOMA
     Dosage: 600MG PER DAY
     Route: 048
     Dates: start: 20130805
  2. EVEROLIMUS [Suspect]
     Indication: RENAL CELL CARCINOMA
     Dosage: 10MG PER DAY
     Route: 048
     Dates: start: 20131001
  3. RANITIDINE [Concomitant]
     Dosage: 150MG TWICE PER DAY
     Dates: start: 20130816, end: 20130915
  4. METOCLOPRAMIDE [Concomitant]
     Dosage: 10MG THREE TIMES PER DAY
     Dates: start: 20130816, end: 20130915
  5. METFORMIN [Concomitant]
     Dosage: 500MG TWICE PER DAY
     Dates: start: 20131005
  6. GLICLAZIDE [Concomitant]
     Dosage: 80MG THREE TIMES PER DAY
     Route: 048
     Dates: start: 20131006
  7. DALTEPARINE [Concomitant]
     Route: 058
     Dates: start: 20131005
  8. PERINDOPRIL [Concomitant]
     Route: 048
  9. SIMVASTATINE [Concomitant]
     Route: 048

REACTIONS (1)
  - Circulatory collapse [Recovered/Resolved]
